FAERS Safety Report 22115274 (Version 1)
Quarter: 2023Q1

REPORT INFORMATION
  Report Type: Spontaneous
  Country: US (occurrence: None)
  Receive Date: 20230318
  Receipt Date: 20230318
  Transmission Date: 20230418
  Serious: No
  Sender: FDA-Public Use
  Company Number: None

PATIENT
  Age: 42 Year
  Sex: Female
  Weight: 144.9 kg

DRUGS (17)
  1. OZEMPIC [Suspect]
     Active Substance: SEMAGLUTIDE
     Indication: Weight decreased
     Dosage: OTHER QUANTITY : 1 INJECTION(S);?OTHER FREQUENCY : WEEKLY;?
     Route: 058
     Dates: start: 20220915, end: 20230118
  2. BUPROPION [Concomitant]
     Active Substance: BUPROPION
  3. TRAZODONE [Concomitant]
     Active Substance: TRAZODONE HYDROCHLORIDE
  4. Levonorgesterel [Concomitant]
  5. IUD NOS [Concomitant]
     Active Substance: COPPER OR LEVONORGESTREL
  6. One-a- Day womens multivitamin [Concomitant]
  7. SR plant-based D3 + K2 supplement [Concomitant]
  8. trunature Advanced Digestive Probiotic [Concomitant]
  9. Natures Bounty Hair skin + Nails biotin gummy [Concomitant]
  10. Vital Proteins collagen gummy [Concomitant]
  11. Sambucus Elderberry gummy [Concomitant]
  12. The Vitamin Shoppe Ultimate Gold Joint Care supplement [Concomitant]
  13. ACETAMINOPHEN [Concomitant]
     Active Substance: ACETAMINOPHEN
  14. IBUPROFEN [Concomitant]
     Active Substance: IBUPROFEN
  15. CVS Health brand calcium carbonate [Concomitant]
  16. Tru47 Immune Boost colloidal silver nasal inhaler [Concomitant]
  17. NAC [Concomitant]

REACTIONS (4)
  - Dysmenorrhoea [None]
  - Ovulation pain [None]
  - Intrauterine contraception [None]
  - Menstruation normal [None]

NARRATIVE: CASE EVENT DATE: 20221120
